FAERS Safety Report 23718296 (Version 1)
Quarter: 2024Q2

REPORT INFORMATION
  Report Type: Spontaneous
  Country: US (occurrence: None)
  Receive Date: 20240406
  Receipt Date: 20240406
  Transmission Date: 20240716
  Serious: Yes (unspecified)
  Sender: FDA-Public Use
  Company Number: None

PATIENT
  Age: 34 Year
  Sex: Female
  Weight: 53.1 kg

DRUGS (3)
  1. FERAHEME [Suspect]
     Active Substance: FERUMOXYTOL NON-STOICHIOMETRIC MAGNETITE
     Indication: Iron deficiency
     Dates: start: 20240328, end: 20240404
  2. LEVOTHYROXINE [Concomitant]
     Active Substance: LEVOTHYROXINE\LEVOTHYROXINE SODIUM
  3. VITAMINS [Concomitant]
     Active Substance: VITAMINS

REACTIONS (3)
  - Rash pruritic [None]
  - Throat tightness [None]
  - Chest discomfort [None]

NARRATIVE: CASE EVENT DATE: 20240404
